FAERS Safety Report 23919937 (Version 3)
Quarter: 2024Q3

REPORT INFORMATION
  Report Type: Spontaneous
  Country: US (occurrence: US)
  Receive Date: 20240530
  Receipt Date: 20240709
  Transmission Date: 20241017
  Serious: Yes (Life-Threatening)
  Sender: MYLAN
  Company Number: US-MYLANLABS-2024M1047960

PATIENT
  Age: 43 Year
  Sex: Female
  Weight: 98.9 kg

DRUGS (1)
  1. EPINEPHRINE [Suspect]
     Active Substance: EPINEPHRINE
     Indication: Infusion related reaction
     Dosage: 0.3 MILLIGRAM
     Route: 065

REACTIONS (2)
  - Device failure [Recovered/Resolved]
  - Drug dose omission by device [Recovered/Resolved]

NARRATIVE: CASE EVENT DATE: 20240522
